FAERS Safety Report 6895158-9 (Version None)
Quarter: 2010Q3

REPORT INFORMATION
  Report Type: 
  Country: None (occurrence: None)
  Receive Date: 20100728
  Receipt Date: 20100720
  Transmission Date: 20110219
  Serious: Yes (Life-Threatening, Hospitalization)
  Sender: FDA-Public Use
  Company Number: VISP-PR-0510S-0519

PATIENT
  Age: 50 Year
  Sex: Female

DRUGS (1)
  1. VISIPAQUE [Suspect]
     Indication: MEDICAL DEVICE COMPLICATION
     Dosage: , SINGLE DOSE, I.V.
     Route: 042
     Dates: start: 20050711, end: 20050711

REACTIONS (4)
  - HEART RATE INCREASED [None]
  - LETHARGY [None]
  - PANCREATITIS ACUTE [None]
  - PANCREATITIS NECROTISING [None]
